FAERS Safety Report 5891681-4 (Version None)
Quarter: 2008Q3

REPORT INFORMATION
  Report Type: 
  Country: None (occurrence: None)
  Receive Date: 20080922
  Receipt Date: 20080909
  Transmission Date: 20090109
  Serious: Yes (Hospitalization)
  Sender: FDA-Public Use
  Company Number: FR-ELI_LILLY_AND_COMPANY-FR200809002073

PATIENT
  Age: 66 Year
  Sex: Female

DRUGS (7)
  1. ZYPREXA [Suspect]
     Indication: PSYCHOTIC DISORDER
     Dosage: 15 MG, DAILY (1/D)
     Route: 048
     Dates: start: 20080801, end: 20080101
  2. ZYPREXA [Suspect]
     Dosage: 5 MG, DAILY (1/D)
     Route: 048
     Dates: start: 20080101, end: 20080101
  3. ZYPREXA [Suspect]
     Dosage: 15 MG, DAILY (1/D)
     Route: 048
     Dates: start: 20080101, end: 20080901
  4. DEPAKOTE [Concomitant]
  5. LEPTICUR [Concomitant]
  6. NORSET [Concomitant]
  7. IMOVANE [Concomitant]

REACTIONS (2)
  - LUNG DISORDER [None]
  - NEUROLEPTIC MALIGNANT SYNDROME [None]
